FAERS Safety Report 9344571 (Version 1)
Quarter: 2013Q2

REPORT INFORMATION
  Report Type: Spontaneous
  Country: US (occurrence: US)
  Receive Date: 20130612
  Receipt Date: 20130612
  Transmission Date: 20140414
  Serious: No
  Sender: FDA-Public Use
  Company Number: US-PFIZER INC-2013175686

PATIENT
  Age: 12 Year
  Sex: Male

DRUGS (4)
  1. ZOLOFT [Suspect]
     Indication: ANXIETY
     Dosage: 75 MG, DAILY
     Route: 048
  2. ZOLOFT [Suspect]
     Indication: DEPRESSION
     Dosage: 100 MG, DAILY
  3. RISPERDAL [Concomitant]
     Indication: AGGRESSION
     Dosage: 0.5 MG, DAILY
     Route: 048
  4. CONCERTA [Concomitant]
     Indication: ATTENTION DEFICIT/HYPERACTIVITY DISORDER
     Dosage: 72 MG, DAILY
     Route: 048

REACTIONS (2)
  - Off label use [Unknown]
  - Low density lipoprotein increased [Not Recovered/Not Resolved]
